FAERS Safety Report 14705465 (Version 1)
Quarter: 2018Q2

REPORT INFORMATION
  Report Type: Spontaneous
  Country: US (occurrence: US)
  Receive Date: 20180402
  Receipt Date: 20180402
  Transmission Date: 20180711
  Serious: No
  Sender: FDA-Public Use
  Company Number: US-009507513-1803USA006473

PATIENT
  Sex: Female
  Weight: 156.92 kg

DRUGS (1)
  1. NEXPLANON [Suspect]
     Active Substance: ETONOGESTREL
     Dosage: 1 IMPLANT (68MG), EVERY THREE YEARS
     Route: 059

REACTIONS (2)
  - No adverse event [Unknown]
  - Complication associated with device [Not Recovered/Not Resolved]
